FAERS Safety Report 5958740-9 (Version None)
Quarter: 2008Q4

REPORT INFORMATION
  Report Type: 
  Country: None (occurrence: None)
  Receive Date: 20081119
  Receipt Date: 20081111
  Transmission Date: 20090506
  Serious: No
  Sender: FDA-Public Use
  Company Number: US-B.I. PHARMACEUTICALS,INC./RIDGEFIELD-2008-BP-14568BP

PATIENT
  Sex: Female

DRUGS (10)
  1. SPIRIVA [Suspect]
     Indication: CHRONIC OBSTRUCTIVE PULMONARY DISEASE
     Dosage: 18MCG
     Route: 055
     Dates: start: 20070901
  2. DILANTIN [Concomitant]
     Indication: CONVULSION
     Dates: start: 20030101
  3. CELEBREX [Concomitant]
     Indication: ARTHRITIS
     Dates: start: 20030101
  4. ATENOLOL [Concomitant]
     Indication: HYPERTENSION
     Dates: start: 19980101
  5. NIFEDIPINE [Concomitant]
     Indication: RAYNAUD'S PHENOMENON
     Dates: start: 20030101
  6. DOXAZOSIN MESYLATE [Concomitant]
     Indication: HYPERTENSION
     Dates: start: 20030101
  7. SERTRALINE [Concomitant]
     Indication: ANXIETY
     Dates: start: 19980101
  8. SERTRALINE [Concomitant]
     Indication: DEPRESSION
  9. ADVAIR DISKUS 100/50 [Concomitant]
     Indication: CHRONIC OBSTRUCTIVE PULMONARY DISEASE
     Dates: start: 20030101
  10. ALBUTEROL BROMIDE [Concomitant]
     Indication: CHRONIC OBSTRUCTIVE PULMONARY DISEASE
     Dates: start: 20030101

REACTIONS (1)
  - DYSPNOEA [None]
